FAERS Safety Report 23136361 (Version 3)
Quarter: 2024Q1

REPORT INFORMATION
  Report Type: Spontaneous
  Country: GB (occurrence: GB)
  Receive Date: 20231102
  Receipt Date: 20240108
  Transmission Date: 20240410
  Serious: Yes (Death, Hospitalization, Disabling, Other)
  Sender: FDA-Public Use
  Company Number: None

PATIENT
  Age: 83 Year

DRUGS (3)
  1. CAPECITABINE [Suspect]
     Active Substance: CAPECITABINE
     Indication: Colon cancer
     Dosage: DOSAGE TEXT: 1 CYCLE (WE WERE NEVER ADVISED THAT MY FATHER WAS ON A REDUCED DOSE)
     Route: 065
     Dates: start: 20230821
  2. CAPECITABINE [Suspect]
     Active Substance: CAPECITABINE
     Indication: Colon cancer
     Route: 065
  3. ALLOPURINOL [Suspect]
     Active Substance: ALLOPURINOL
     Indication: Gout
     Route: 065

REACTIONS (13)
  - Death [Fatal]
  - Hiccups [Fatal]
  - Medication error [Unknown]
  - Joint swelling [Fatal]
  - Incorrect dose administered [Fatal]
  - Toxicity to various agents [Fatal]
  - Fatigue [Fatal]
  - Peripheral swelling [Fatal]
  - Mobility decreased [Fatal]
  - Urinary incontinence [Fatal]
  - Agitation [Fatal]
  - Confusional state [Fatal]
  - Hepatic enzyme increased [Fatal]

NARRATIVE: CASE EVENT DATE: 20230824
